FAERS Safety Report 25632732 (Version 1)
Quarter: 2025Q3

REPORT INFORMATION
  Report Type: Spontaneous
  Country: US (occurrence: US)
  Receive Date: 20250801
  Receipt Date: 20250801
  Transmission Date: 20251021
  Serious: Yes (Hospitalization)
  Sender: MYLAN
  Company Number: US-MYLANLABS-2025M1062258

PATIENT
  Age: 79 Year
  Sex: Female

DRUGS (16)
  1. METOLAZONE [Suspect]
     Active Substance: METOLAZONE
     Indication: Diuretic therapy
  2. METOLAZONE [Suspect]
     Active Substance: METOLAZONE
     Indication: Cardiac failure chronic
     Route: 065
  3. METOLAZONE [Suspect]
     Active Substance: METOLAZONE
     Route: 065
  4. METOLAZONE [Suspect]
     Active Substance: METOLAZONE
  5. TIRZEPATIDE [Suspect]
     Active Substance: TIRZEPATIDE
     Indication: Type 2 diabetes mellitus
  6. TIRZEPATIDE [Suspect]
     Active Substance: TIRZEPATIDE
     Route: 065
  7. TIRZEPATIDE [Suspect]
     Active Substance: TIRZEPATIDE
     Route: 065
  8. TIRZEPATIDE [Suspect]
     Active Substance: TIRZEPATIDE
  9. BUMETANIDE [Suspect]
     Active Substance: BUMETANIDE
     Indication: Diuretic therapy
  10. BUMETANIDE [Suspect]
     Active Substance: BUMETANIDE
     Route: 065
  11. BUMETANIDE [Suspect]
     Active Substance: BUMETANIDE
     Route: 065
  12. BUMETANIDE [Suspect]
     Active Substance: BUMETANIDE
  13. INSULIN NOS [Concomitant]
     Active Substance: INSULIN NOS
     Indication: Type 2 diabetes mellitus
  14. INSULIN NOS [Concomitant]
     Active Substance: INSULIN NOS
     Route: 065
  15. INSULIN NOS [Concomitant]
     Active Substance: INSULIN NOS
     Route: 065
  16. INSULIN NOS [Concomitant]
     Active Substance: INSULIN NOS

REACTIONS (5)
  - Nausea [Recovering/Resolving]
  - Vomiting [Recovering/Resolving]
  - Acute kidney injury [Recovering/Resolving]
  - Hyponatraemia [Recovering/Resolving]
  - Hypovolaemia [Recovering/Resolving]
